FAERS Safety Report 10507401 (Version 1)
Quarter: 2014Q4

REPORT INFORMATION
  Report Type: Spontaneous
  Country: US (occurrence: US)
  Receive Date: 20141009
  Receipt Date: 20141009
  Transmission Date: 20150528
  Serious: Yes (Other)
  Sender: FDA-Public Use
  Company Number: US-ASTELLAS-2014US014298

PATIENT
  Sex: Male

DRUGS (1)
  1. XTANDI [Suspect]
     Active Substance: ENZALUTAMIDE
     Indication: PROSTATE CANCER
     Route: 048

REACTIONS (9)
  - Pain in extremity [Unknown]
  - Dyspnoea [Unknown]
  - Musculoskeletal chest pain [Unknown]
  - Insomnia [Unknown]
  - Fatigue [Unknown]
  - Abdominal discomfort [Unknown]
  - Back pain [Unknown]
  - Nausea [Unknown]
  - Metastases to spine [Unknown]
